FAERS Safety Report 17595935 (Version 1)
Quarter: 2020Q1

REPORT INFORMATION
  Report Type: Spontaneous
  Country: GB (occurrence: GB)
  Receive Date: 20200329
  Receipt Date: 20200329
  Transmission Date: 20200409
  Serious: Yes (Hospitalization, Other)
  Sender: FDA-Public Use
  Company Number: GB-BAUSCH-BL-2020-009634

PATIENT
  Age: 40 Year
  Sex: Male

DRUGS (5)
  1. LISINOPRIL. [Concomitant]
     Active Substance: LISINOPRIL
     Indication: PRODUCT USED FOR UNKNOWN INDICATION
  2. MELATONIN [Concomitant]
     Active Substance: MELATONIN
     Indication: PRODUCT USED FOR UNKNOWN INDICATION
  3. ZOFRAN [Concomitant]
     Active Substance: ONDANSETRON HYDROCHLORIDE
     Indication: PRODUCT USED FOR UNKNOWN INDICATION
  4. KYNTHEUM [Suspect]
     Active Substance: BRODALUMAB
     Indication: PRODUCT USED FOR UNKNOWN INDICATION
     Route: 065
  5. INSULIN [Concomitant]
     Active Substance: INSULIN NOS
     Indication: PRODUCT USED FOR UNKNOWN INDICATION

REACTIONS (5)
  - Candida infection [Unknown]
  - Injection site haemorrhage [Unknown]
  - Gastrointestinal disorder [Unknown]
  - Sepsis [Unknown]
  - Pain [Unknown]

NARRATIVE: CASE EVENT DATE: 201911
